FAERS Safety Report 9239122 (Version 1)
Quarter: 2013Q2

REPORT INFORMATION
  Report Type: Spontaneous
  Country: FR (occurrence: FR)
  Receive Date: 20130418
  Receipt Date: 20130418
  Transmission Date: 20140414
  Serious: Yes (Hospitalization)
  Sender: FDA-Public Use
  Company Number: FR-PFIZER INC-2013116916

PATIENT
  Age: 80 Year
  Sex: Female

DRUGS (5)
  1. FLUOROURACILE PFIZER [Suspect]
     Indication: COLON CANCER
     Dosage: 3150 MG FOR 46 HOURS
     Route: 042
     Dates: start: 20121105
  2. FLUOROURACILE PFIZER [Suspect]
     Dosage: 2700 MG FOR 46 HOURS
     Dates: start: 20121202
  3. LEUCOVORINE [Suspect]
     Indication: COLON CANCER
     Dosage: SINGLE DOSE
     Route: 042
     Dates: start: 20121105, end: 20121105
  4. SECTRAL [Concomitant]
     Indication: HYPERTENSION
     Dosage: 0.5 DF, 2X/DAY
     Route: 048
     Dates: start: 201210
  5. LASILIX FAIBLE [Concomitant]
     Dosage: 1 DF, 1X/DAY
     Route: 048
     Dates: start: 201210

REACTIONS (2)
  - Extrasystoles [Recovered/Resolved]
  - Chest pain [Recovered/Resolved]
